FAERS Safety Report 5711568-7 (Version None)
Quarter: 2008Q2

REPORT INFORMATION
  Report Type: 
  Country: None (occurrence: None)
  Receive Date: 20080418
  Receipt Date: 20080418
  Transmission Date: 20081010
  Serious: Yes (Other)
  Sender: FDA-Public Use
  Company Number: None

PATIENT
  Age: 6 Year
  Sex: Male
  Weight: 27 kg

DRUGS (1)
  1. SINGULAIR [Suspect]
     Indication: RHINITIS ALLERGIC
     Dosage: 5 MG ONCE A DAY PO
     Route: 048
     Dates: start: 20071117, end: 20080401

REACTIONS (3)
  - ABNORMAL BEHAVIOUR [None]
  - CRYING [None]
  - MORBID THOUGHTS [None]
